FAERS Safety Report 6003679-6 (Version None)
Quarter: 2008Q4

REPORT INFORMATION
  Report Type: 
  Country: None (occurrence: None)
  Receive Date: 20081216
  Receipt Date: 20080715
  Transmission Date: 20090506
  Serious: No
  Sender: FDA-Public Use
  Company Number: US-AMGEN-KDL295420

PATIENT
  Sex: Male

DRUGS (2)
  1. PROCRIT [Suspect]
     Indication: MYELODYSPLASTIC SYNDROME
  2. ARANESP [Suspect]

REACTIONS (5)
  - FATIGUE [None]
  - HYPERSOMNIA [None]
  - INFLUENZA LIKE ILLNESS [None]
  - MALAISE [None]
  - THERAPEUTIC RESPONSE DECREASED [None]
